FAERS Safety Report 5043245-2 (Version None)
Quarter: 2006Q2

REPORT INFORMATION
  Report Type: 
  Country: None (occurrence: None)
  Receive Date: 20060629
  Receipt Date: 20060613
  Transmission Date: 20061013
  Serious: Yes (Other)
  Sender: FDA-Public Use
  Company Number: CA-2005-003549

PATIENT
  Age: 62 Year
  Sex: Female

DRUGS (5)
  1. BETASERON [Suspect]
     Indication: RELAPSING-REMITTING MULTIPLE SCLEROSIS
     Dosage: 8 MIU, EVERY 2D, SUBCUTANEOUS
     Route: 058
     Dates: start: 19980114
  2. SYMMETREL [Concomitant]
  3. SOTALOL (SOTALOL) [Concomitant]
  4. TAGMET (CIMETIDINE) [Concomitant]
  5. LORAZEPAM [Concomitant]

REACTIONS (7)
  - HEADACHE [None]
  - HYPERTENSION [None]
  - MACULAR DEGENERATION [None]
  - RETINAL EXUDATES [None]
  - RHINORRHOEA [None]
  - SINUS CONGESTION [None]
  - TACHYCARDIA [None]
